FAERS Safety Report 9677119 (Version 1)
Quarter: 2013Q4

REPORT INFORMATION
  Report Type: Spontaneous
  Country: US (occurrence: US)
  Receive Date: 20131108
  Receipt Date: 20131108
  Transmission Date: 20140711
  Serious: No
  Sender: FDA-Public Use
  Company Number: US-009507513-1311GBR001964

PATIENT
  Age: 60 Year
  Sex: Female

DRUGS (1)
  1. VICTRELIS [Suspect]
     Indication: CHRONIC HEPATITIS C
     Dosage: 800 MG, TID
     Route: 048
     Dates: start: 20131025, end: 20131104

REACTIONS (6)
  - Abdominal discomfort [Unknown]
  - Rash [Unknown]
  - Nausea [Unknown]
  - Chills [Unknown]
  - Headache [Unknown]
  - Drug intolerance [Unknown]
